FAERS Safety Report 6277463-2 (Version None)
Quarter: 2009Q3

REPORT INFORMATION
  Report Type: 
  Country: None (occurrence: None)
  Receive Date: 20090722
  Receipt Date: 20090710
  Transmission Date: 20100115
  Serious: Yes (Hospitalization)
  Sender: FDA-Public Use
  Company Number: GB-PFIZER INC-2009153271

PATIENT
  Age: 60 Year

DRUGS (13)
  1. BLINDED *NO SUBJECT DRUG [Suspect]
     Indication: NON-SMALL CELL LUNG CANCER
     Dosage: 37.5 MG, 1X/DAY
     Route: 048
     Dates: start: 20080927, end: 20081205
  2. BLINDED *PLACEBO [Suspect]
     Indication: NON-SMALL CELL LUNG CANCER
     Dosage: 37.5 MG, 1X/DAY
     Route: 048
     Dates: start: 20080927, end: 20081205
  3. BLINDED SUNITINIB MALATE [Suspect]
     Indication: NON-SMALL CELL LUNG CANCER
     Dosage: 37.5 MG, 1X/DAY
     Route: 048
     Dates: start: 20080927, end: 20081205
  4. *ERLOTINIB [Suspect]
     Indication: NON-SMALL CELL LUNG CANCER
     Dosage: 150 MG, 1X/DAY
     Route: 048
     Dates: start: 20080927, end: 20081205
  5. TRAMADOL HYDROCHLORIDE [Concomitant]
     Dosage: UNK
     Route: 048
  6. QUININE SULFATE [Concomitant]
     Dosage: UNK
     Route: 048
  7. ALLOPURINOL [Concomitant]
     Dosage: UNK
     Route: 048
  8. ORAMORPH SR [Concomitant]
     Dosage: UNK
     Route: 048
  9. NULYTELY [Concomitant]
     Dosage: UNK
     Route: 048
  10. RABEPRAZOLE SODIUM [Concomitant]
     Dosage: UNK
     Route: 048
  11. FELODIPINE [Concomitant]
     Dosage: UNK
     Route: 048
  12. SALBUTAMOL SULFATE [Concomitant]
     Dosage: UNK
     Route: 055
  13. SERETIDE [Concomitant]
     Dosage: UNK
     Route: 055

REACTIONS (7)
  - ABDOMINAL PAIN UPPER [None]
  - ALANINE AMINOTRANSFERASE INCREASED [None]
  - BLOOD BILIRUBIN INCREASED [None]
  - CHOLELITHIASIS [None]
  - GASTROINTESTINAL PAIN [None]
  - NAUSEA [None]
  - ORAL PAIN [None]
